FAERS Safety Report 11971651 (Version 6)
Quarter: 2017Q1

REPORT INFORMATION
  Report Type: Spontaneous
  Country: US (occurrence: US)
  Receive Date: 20160128
  Receipt Date: 20170303
  Transmission Date: 20170428
  Serious: Yes (Other)
  Sender: FDA-Public Use
  Company Number: US-PFIZER INC-2016036751

PATIENT
  Age: 9 Year
  Sex: Male
  Weight: 31.7 kg

DRUGS (5)
  1. BENEFIX [Suspect]
     Active Substance: COAGULATION FACTOR IX RECOMBINANT HUMAN\ISOPROPYL ALCOHOL
     Indication: FACTOR IX DEFICIENCY
     Dosage: 3500 IU, 1X/DAY
     Route: 042
     Dates: start: 20160112, end: 20160113
  2. BENEFIX [Suspect]
     Active Substance: COAGULATION FACTOR IX RECOMBINANT HUMAN\ISOPROPYL ALCOHOL
     Dosage: 3300 IU, AS NEEDED FOR MAJOR BLEED
     Route: 042
     Dates: start: 20160119
  3. BENEFIX [Suspect]
     Active Substance: COAGULATION FACTOR IX RECOMBINANT HUMAN\ISOPROPYL ALCOHOL
     Dosage: 1900 IU, AS NEEDED (FOR MINOR BLEED (+ OR - 10 %) IV)
     Route: 042
  4. BENEFIX [Suspect]
     Active Substance: COAGULATION FACTOR IX RECOMBINANT HUMAN\ISOPROPYL ALCOHOL
     Dosage: 1650 IU, AS NEEDED FOR MINOR BLEED (+/- 10%)
     Route: 042
     Dates: start: 20160119
  5. BENEFIX [Suspect]
     Active Substance: COAGULATION FACTOR IX RECOMBINANT HUMAN\ISOPROPYL ALCOHOL
     Dosage: 3800 IU, AS NEEDED (FOR OTHER (BLEEDING) FOR MAJOR BLEED)
     Route: 042

REACTIONS (5)
  - Fall [Unknown]
  - Head injury [Unknown]
  - Haemorrhage [Recovered/Resolved]
  - Haematoma [Unknown]
  - Skin haemorrhage [Unknown]

NARRATIVE: CASE EVENT DATE: 20160112
